FAERS Safety Report 4692980-4 (Version None)
Quarter: 2005Q2

REPORT INFORMATION
  Report Type: 
  Country: None (occurrence: None)
  Receive Date: 20050223
  Receipt Date: 20050223
  Transmission Date: 20051028
  Serious: Yes (Other)
  Sender: FDA-Public Use
  Company Number: None

PATIENT
  Sex: Female
  Weight: 47.6277 kg

DRUGS (3)
  1. TRAMADOL HCL [Suspect]
     Indication: EPIDERMOLYSIS BULLOSA
     Dosage: 50 MG PO 3-4 X/D
     Route: 048
     Dates: start: 20021112
  2. NEXIUM [Concomitant]
  3. DURAGESIC-100 [Concomitant]

REACTIONS (2)
  - CONSTIPATION [None]
  - HEADACHE [None]
